FAERS Safety Report 4322363-8 (Version None)
Quarter: 2004Q1

REPORT INFORMATION
  Report Type: 
  Country: None (occurrence: None)
  Receive Date: 20040322
  Receipt Date: 20040322
  Transmission Date: 20041129
  Serious: Yes (Hospitalization)
  Sender: FDA-Public Use
  Company Number: None

PATIENT
  Age: 50 Year
  Weight: 67.4045 kg

DRUGS (1)
  1. D-THREO-METHYLPHENIDATE HCI 5 MG- CELGENE [Suspect]
     Dosage: ONE 5 MG TAB BID PO AND INCREASED TWO BID
     Route: 048
     Dates: start: 20030211

REACTIONS (6)
  - ACUTE PRERENAL FAILURE [None]
  - ASTHENIA [None]
  - DECREASED APPETITE [None]
  - DEHYDRATION [None]
  - DIZZINESS [None]
  - HAEMOPTYSIS [None]
